FAERS Safety Report 11848637 (Version 1)
Quarter: 2015Q4

REPORT INFORMATION
  Report Type: Spontaneous
  Country: US (occurrence: US)
  Receive Date: 20151218
  Receipt Date: 20151218
  Transmission Date: 20160305
  Serious: No
  Sender: FDA-Public Use
  Company Number: US-ASTRAZENECA-2015SF24474

PATIENT
  Sex: Female
  Weight: 140.6 kg

DRUGS (1)
  1. BYDUREON [Suspect]
     Active Substance: EXENATIDE
     Indication: TYPE 2 DIABETES MELLITUS
     Route: 058
     Dates: start: 201510

REACTIONS (4)
  - Constipation [Unknown]
  - Nausea [Not Recovered/Not Resolved]
  - Headache [Unknown]
  - Weight decreased [Unknown]
